FAERS Safety Report 5315130-X (Version None)
Quarter: 2007Q2

REPORT INFORMATION
  Report Type: 
  Country: None (occurrence: None)
  Receive Date: 20070427
  Receipt Date: 20070416
  Transmission Date: 20071010
  Serious: Yes (Hospitalization)
  Sender: FDA-Public Use
  Company Number: B0467325A

PATIENT
  Age: 74 Year
  Sex: Female

DRUGS (6)
  1. PARACETAMOL ( FORMULATION UNKNOWN) (GENERIC)  (ACETAMINOPHEN) [Suspect]
  2. LAMOTRIGINE ( FORMULATION UNKNOWN) (GENERIC) (LAMOTRIGINE ) [Suspect]
  3. ENALAPRIL  (FORMULATION UNKNOWN) (GENERIC) ( ENALAPRIL) [Suspect]
  4. CARBAMAZEPINE [Suspect]
  5. LIGNOCAINE  HYDROCHLORIDE (FORMULATION UNKNOWN)(LIDOCAINE HCL) [Suspect]
  6. METOPROLOL TARTRATE [Suspect]

REACTIONS (2)
  - DRUG TOXICITY [None]
  - SOMNOLENCE [None]
